FAERS Safety Report 9454554 (Version 1)
Quarter: 2013Q3

REPORT INFORMATION
  Report Type: Spontaneous
  Country: US (occurrence: US)
  Receive Date: 20130812
  Receipt Date: 20130812
  Transmission Date: 20140515
  Serious: Yes (Other)
  Sender: FDA-Public Use
  Company Number: US-TEVA-424346USA

PATIENT
  Age: 22 Year
  Sex: Female
  Weight: 54.93 kg

DRUGS (2)
  1. PARAGARD 380A [Suspect]
     Indication: CONTRACEPTION
     Route: 015
     Dates: start: 20130715, end: 20130805
  2. ZOLOFT [Concomitant]
     Indication: ANXIETY
     Dosage: 50 MILLIGRAM DAILY;

REACTIONS (5)
  - Loss of consciousness [Recovered/Resolved]
  - Pelvic pain [Recovered/Resolved]
  - Menorrhagia [Recovered/Resolved]
  - Device expulsion [Recovered/Resolved]
  - Pain [Recovered/Resolved]
